FAERS Safety Report 7612772-3 (Version None)
Quarter: 2011Q3

REPORT INFORMATION
  Report Type: 
  Country: None (occurrence: None)
  Receive Date: 20110708
  Receipt Date: 20110627
  Transmission Date: 20111222
  Serious: Yes (Other)
  Sender: FDA-Public Use
  Company Number: LEO-2011-00554

PATIENT
  Age: 40 Year
  Sex: Male
  Weight: 100 kg

DRUGS (3)
  1. INNOHEP [Suspect]
     Indication: ARRHYTHMIA
     Dosage: 7000 IU (1 IN 1 D), SUBCUTANEOUS
     Route: 058
     Dates: start: 20110101, end: 20110101
  2. VITAMIN K ANTAGONIST (VITAMIN K ANTAGONISTS) [Concomitant]
  3. PREVISCAN (PENTOXIFYLLINE) [Concomitant]

REACTIONS (2)
  - COAGULATION TIME PROLONGED [None]
  - OFF LABEL USE [None]
